FAERS Safety Report 8911149 (Version 1)
Quarter: 2012Q4

REPORT INFORMATION
  Report Type: 
  Country: US (occurrence: US)
  Receive Date: 20121116
  Receipt Date: 20121116
  Transmission Date: 20130627
  Serious: No
  Sender: FDA-Public Use
  Company Number: US-GLAXOSMITHKLINE-A0987464A

PATIENT
  Age: 65 Year
  Sex: Male
  Weight: 76.4 kg

DRUGS (4)
  1. VOTRIENT [Suspect]
     Indication: PRODUCT USED FOR UNKNOWN INDICATION
     Dosage: 800MG Per day
     Route: 048
  2. LISINOPRIL [Concomitant]
  3. ZOFRAN [Concomitant]
  4. OXYCONTIN CR [Concomitant]

REACTIONS (1)
  - Anal abscess [Unknown]
